FAERS Safety Report 10045893 (Version 2)
Quarter: 2014Q2

REPORT INFORMATION
  Report Type: Spontaneous
  Country: JP (occurrence: JP)
  Receive Date: 20140329
  Receipt Date: 20140409
  Transmission Date: 20141212
  Serious: Yes (Life-Threatening)
  Sender: FDA-Public Use
  Company Number: JP-ABBVIE-14K-087-1216850-00

PATIENT
  Age: 71 Year
  Sex: Male
  Weight: 55 kg

DRUGS (11)
  1. LEUPLIN [Suspect]
     Indication: PROSTATE CANCER
     Route: 058
     Dates: start: 20140320
  2. CASODEX [Concomitant]
     Indication: PRODUCT USED FOR UNKNOWN INDICATION
     Dates: start: 20140310, end: 20140327
  3. ALLELOCK [Concomitant]
     Indication: PRODUCT USED FOR UNKNOWN INDICATION
  4. SUNRYTHM [Concomitant]
     Indication: PRODUCT USED FOR UNKNOWN INDICATION
  5. BUP-4 [Concomitant]
     Indication: PRODUCT USED FOR UNKNOWN INDICATION
  6. ALEVIATIN [Concomitant]
     Indication: PRODUCT USED FOR UNKNOWN INDICATION
  7. FORSENID [Concomitant]
     Indication: PRODUCT USED FOR UNKNOWN INDICATION
  8. WARFARIN POTASSIUM [Concomitant]
     Indication: PRODUCT USED FOR UNKNOWN INDICATION
  9. HARNAL [Concomitant]
     Indication: PRODUCT USED FOR UNKNOWN INDICATION
  10. EVIPROSTAT DB [Concomitant]
     Indication: PRODUCT USED FOR UNKNOWN INDICATION
  11. E KEPPRA [Concomitant]
     Indication: PRODUCT USED FOR UNKNOWN INDICATION

REACTIONS (1)
  - Cerebral infarction [Not Recovered/Not Resolved]
